FAERS Safety Report 6100511-7 (Version None)
Quarter: 2009Q1

REPORT INFORMATION
  Report Type: 
  Country: None (occurrence: None)
  Receive Date: 20090226
  Receipt Date: 20090211
  Transmission Date: 20090719
  Serious: Yes (Death)
  Sender: FDA-Public Use
  Company Number: 2009000398

PATIENT
  Age: 73 Week
  Sex: Male

DRUGS (1)
  1. ERLOTINIB (ERLOTINIB) (TABLET) (ELOTINIB) [Suspect]
     Indication: NON-SMALL CELL LUNG CANCER
     Dosage: 9150 ), ORAL
     Route: 048
     Dates: start: 20090122, end: 20090126

REACTIONS (4)
  - CEREBRAL ISCHAEMIA [None]
  - FRACTURED SACRUM [None]
  - PERFORMANCE STATUS DECREASED [None]
  - SUDDEN DEATH [None]
